FAERS Safety Report 18326345 (Version 1)
Quarter: 2020Q3

REPORT INFORMATION
  Report Type: Spontaneous
  Country: ES (occurrence: ES)
  Receive Date: 20200929
  Receipt Date: 20200929
  Transmission Date: 20201103
  Serious: Yes (Other)
  Sender: FDA-Public Use
  Company Number: ES-DSJP-DSE-2020-127782

PATIENT
  Age: 86 Year
  Sex: Male

DRUGS (1)
  1. CAPENON [Suspect]
     Active Substance: AMLODIPINE BESYLATE\OLMESARTAN MEDOXOMIL
     Indication: HYPERTENSION
     Dosage: UNK

REACTIONS (7)
  - Fall [Unknown]
  - Hyperhidrosis [Unknown]
  - Loss of consciousness [Unknown]
  - Blood pressure diastolic decreased [Unknown]
  - Syncope [Unknown]
  - Nausea [Recovering/Resolving]
  - Dizziness [Unknown]

NARRATIVE: CASE EVENT DATE: 20200921
